FAERS Safety Report 9547000 (Version 1)
Quarter: 2013Q3

REPORT INFORMATION
  Report Type: Spontaneous
  Country: US (occurrence: US)
  Receive Date: 20130924
  Receipt Date: 20130924
  Transmission Date: 20140515
  Serious: No
  Sender: FDA-Public Use
  Company Number: US-TEVA-433808USA

PATIENT
  Age: 41 Year
  Sex: Male
  Weight: 108.96 kg

DRUGS (1)
  1. COPAXONE [Suspect]
     Indication: MULTIPLE SCLEROSIS
     Dates: start: 2012

REACTIONS (1)
  - Muscle spasms [Not Recovered/Not Resolved]
